FAERS Safety Report 8052472-1 (Version None)
Quarter: 2012Q1

REPORT INFORMATION
  Report Type: 
  Country: None (occurrence: None)
  Receive Date: 20120118
  Receipt Date: 20120113
  Transmission Date: 20120608
  Serious: Yes (Hospitalization, Other)
  Sender: FDA-Public Use
  Company Number: US-PFIZER INC-2011307592

PATIENT
  Sex: Female

DRUGS (2)
  1. TYLENOL W/ CODEINE NO. 3 [Concomitant]
     Indication: ARTHRITIS
     Dosage: UNK
  2. SUTENT [Suspect]
     Indication: METASTATIC RENAL CELL CARCINOMA
     Dosage: 50 MG, 1X/DAY
     Route: 048
     Dates: start: 20111201

REACTIONS (11)
  - VOMITING [None]
  - DIARRHOEA [None]
  - PLATELET COUNT DECREASED [None]
  - NAUSEA [None]
  - HEADACHE [None]
  - DIZZINESS [None]
  - FALL [None]
  - CEREBROVASCULAR ACCIDENT [None]
  - FATIGUE [None]
  - BRADYPHRENIA [None]
  - PAIN IN EXTREMITY [None]
